FAERS Safety Report 7617164-9 (Version None)
Quarter: 2011Q3

REPORT INFORMATION
  Report Type: 
  Country: None (occurrence: None)
  Receive Date: 20110718
  Receipt Date: 20110711
  Transmission Date: 20111222
  Serious: Yes (Other)
  Sender: FDA-Public Use
  Company Number: US-BAYER-2011-061276

PATIENT
  Age: 19 Year
  Sex: Female

DRUGS (2)
  1. DROSPIRENONE AND ETHINYL ESTRADIOL [Suspect]
     Indication: MENSTRUATION IRREGULAR
     Dosage: UNK
     Dates: start: 20110201
  2. YASMIN [Concomitant]
     Dosage: UNK
     Dates: end: 20110201

REACTIONS (8)
  - NAUSEA [None]
  - DIZZINESS [None]
  - MALAISE [None]
  - MUSCLE SPASMS [None]
  - NERVOUSNESS [None]
  - AFFECT LABILITY [None]
  - PALLOR [None]
  - LOSS OF CONSCIOUSNESS [None]
